FAERS Safety Report 23912273 (Version 1)
Quarter: 2024Q2

REPORT INFORMATION
  Report Type: Spontaneous
  Country: US (occurrence: US)
  Receive Date: 20240528
  Receipt Date: 20240528
  Transmission Date: 20240717
  Serious: No
  Sender: FDA-Public Use
  Company Number: US-Dermavant-001038

PATIENT
  Age: 38 Year
  Sex: Female

DRUGS (4)
  1. TAPINAROF [Suspect]
     Active Substance: TAPINAROF
     Indication: Psoriasis
     Dosage: 16-FEB-2024: DECHALLENGE POSITIVE?21-FEB-2024: RECHALLENGE POSITIVE
     Route: 061
     Dates: start: 20240216
  2. TALTZ [Concomitant]
     Active Substance: IXEKIZUMAB
  3. SYNTHROID [Concomitant]
     Active Substance: LEVOTHYROXINE SODIUM
  4. DOXYCYCLINE [Concomitant]
     Active Substance: DOXYCYCLINE\DOXYCYCLINE HYCLATE

REACTIONS (4)
  - Dizziness [Unknown]
  - Lip swelling [Unknown]
  - Swollen tongue [Unknown]
  - Paraesthesia oral [Unknown]

NARRATIVE: CASE EVENT DATE: 20240216
